FAERS Safety Report 25721129 (Version 1)
Quarter: 2025Q3

REPORT INFORMATION
  Report Type: Spontaneous
  Country: CN (occurrence: CN)
  Receive Date: 20250825
  Receipt Date: 20250825
  Transmission Date: 20251021
  Serious: Yes (Hospitalization, Disabling)
  Sender: MACLEODS
  Company Number: CN-MLMSERVICE-20250806-PI604489-00201-1

PATIENT

DRUGS (2)
  1. LIDOCAINE [Suspect]
     Active Substance: LIDOCAINE
     Indication: Epidural anaesthesia
     Route: 008
  2. ROPIVACAINE [Suspect]
     Active Substance: ROPIVACAINE
     Indication: Epidural anaesthesia
     Route: 008

REACTIONS (3)
  - Paraplegia [Recovering/Resolving]
  - Tumour haemorrhage [Recovering/Resolving]
  - Spinal cord injury [Recovering/Resolving]
